FAERS Safety Report 17681086 (Version 9)
Quarter: 2020Q3

REPORT INFORMATION
  Report Type: Report from Study
  Country: GB (occurrence: GB)
  Receive Date: 20200417
  Receipt Date: 20200817
  Transmission Date: 20201102
  Serious: Yes (Other)
  Sender: FDA-Public Use
  Company Number: NVSC2020GB050848

PATIENT
  Age: 61 Year
  Sex: Female

DRUGS (3)
  1. COSENTYX [Suspect]
     Active Substance: SECUKINUMAB
     Dosage: 300 MG, QMO
     Route: 058
     Dates: start: 20200213
  2. COSENTYX [Suspect]
     Active Substance: SECUKINUMAB
     Dosage: 300 MG, QMO (LAST LOADING DOSE)
     Route: 058
     Dates: start: 20200314
  3. COSENTYX [Suspect]
     Active Substance: SECUKINUMAB
     Indication: PSORIATIC ARTHROPATHY
     Dosage: 300 MG, QMO
     Route: 058
     Dates: start: 20200127

REACTIONS (22)
  - Ocular hyperaemia [Recovering/Resolving]
  - Headache [Recovering/Resolving]
  - Eye infection [Unknown]
  - Muscle fatigue [Recovering/Resolving]
  - Sinonasal obstruction [Not Recovered/Not Resolved]
  - Diarrhoea [Recovered/Resolved]
  - Eye pruritus [Unknown]
  - Secretion discharge [Not Recovered/Not Resolved]
  - Aphonia [Not Recovered/Not Resolved]
  - Arthralgia [Unknown]
  - Tonsillitis [Recovered/Resolved]
  - Feeling abnormal [Recovered/Resolved]
  - Pyrexia [Unknown]
  - Lower respiratory tract infection [Recovered/Resolved]
  - Deafness unilateral [Not Recovered/Not Resolved]
  - Cough [Unknown]
  - Productive cough [Not Recovered/Not Resolved]
  - Malaise [Not Recovered/Not Resolved]
  - Eye discharge [Unknown]
  - Muscle spasms [Recovered/Resolved]
  - Catarrh [Unknown]
  - Oropharyngeal pain [Not Recovered/Not Resolved]

NARRATIVE: CASE EVENT DATE: 20200215
